FAERS Safety Report 5789723-X (Version None)
Quarter: 2008Q2

REPORT INFORMATION
  Report Type: 
  Country: None (occurrence: None)
  Receive Date: 20080626
  Receipt Date: 20080212
  Transmission Date: 20081010
  Serious: No
  Sender: FDA-Public Use
  Company Number: A0709057A

PATIENT
  Age: 50 Year
  Sex: Female

DRUGS (4)
  1. ALLI [Suspect]
     Dates: start: 20080204, end: 20080208
  2. PREVACID [Concomitant]
  3. NAPROXEN [Concomitant]
  4. FIBER SUPPLEMENT [Concomitant]

REACTIONS (1)
  - CONSTIPATION [None]
